FAERS Safety Report 7802229-9 (Version None)
Quarter: 2011Q4

REPORT INFORMATION
  Report Type: 
  Country: None (occurrence: None)
  Receive Date: 20111007
  Receipt Date: 20110928
  Transmission Date: 20120403
  Serious: Yes (Other)
  Sender: FDA-Public Use
  Company Number: US-JNJFOC-20111000912

PATIENT
  Age: 43 Year
  Sex: Male

DRUGS (1)
  1. NICOTINE [Suspect]
     Indication: SMOKING CESSATION THERAPY
     Route: 002
     Dates: start: 20050501

REACTIONS (6)
  - INCORRECT DRUG ADMINISTRATION DURATION [None]
  - TOOTH FRACTURE [None]
  - ALOPECIA [None]
  - ACNE [None]
  - YELLOW SKIN [None]
  - NICOTINE DEPENDENCE [None]
